FAERS Safety Report 4842773-X (Version None)
Quarter: 2005Q4

REPORT INFORMATION
  Report Type: 
  Country: None (occurrence: None)
  Receive Date: 20051201
  Receipt Date: 20050926
  Transmission Date: 20060501
  Serious: Yes (Hospitalization, Congenital Anomaly)
  Sender: FDA-Public Use
  Company Number: US-MERCK-0509USA04280

PATIENT
  Sex: Male

DRUGS (1)
  1. SINGULAIR [Suspect]
     Dates: start: 20040101

REACTIONS (1)
  - HYPOSPADIAS [None]
